FAERS Safety Report 24058249 (Version 1)
Quarter: 2024Q3

REPORT INFORMATION
  Report Type: Spontaneous
  Country: US (occurrence: US)
  Receive Date: 20240708
  Receipt Date: 20240708
  Transmission Date: 20241016
  Serious: Yes (Other)
  Sender: AUROBINDO
  Company Number: US-AUROBINDO-AUR-APL-2024-032052

PATIENT
  Age: 70 Year
  Sex: Male

DRUGS (1)
  1. TAMOXIFEN [Suspect]
     Active Substance: TAMOXIFEN
     Indication: Breast cancer male
     Dosage: UNK
     Route: 065

REACTIONS (3)
  - Metastases to pleura [Unknown]
  - Pleural effusion [Unknown]
  - Drug ineffective [Unknown]
